FAERS Safety Report 22249475 (Version 1)
Quarter: 2023Q2

REPORT INFORMATION
  Report Type: Spontaneous
  Country: US (occurrence: None)
  Receive Date: 20230421
  Receipt Date: 20230421
  Transmission Date: 20230721
  Serious: Yes (Hospitalization)
  Sender: FDA-Public Use
  Company Number: None

PATIENT
  Sex: Male

DRUGS (15)
  1. MYCOPHENOLIC ACID [Suspect]
     Active Substance: MYCOPHENOLIC ACID
     Indication: Renal transplant
     Dosage: FREQUENCY : TWICE A DAY;?
     Route: 048
     Dates: start: 20150728
  2. ASPIRIN TAB [Concomitant]
  3. COZAAR TAB [Concomitant]
  4. FLECAINIDE TAB [Concomitant]
  5. HYDROCHLOROT CAP [Concomitant]
  6. LIPITOR TAB [Concomitant]
  7. LOSARTAN POT TAB [Concomitant]
  8. METFORMIN TAB [Concomitant]
  9. MYCOPHENOLAT TAB [Concomitant]
  10. NORVASC TAB [Concomitant]
  11. PREDNISONE [Concomitant]
     Active Substance: PREDNISONE
  12. SHINGRIX INJ [Concomitant]
  13. TACROLIMUS [Concomitant]
     Active Substance: TACROLIMUS
  14. XARELTO TAB [Concomitant]
  15. ZANTAC TAB [Concomitant]

REACTIONS (1)
  - Seizure [None]
